FAERS Safety Report 14923288 (Version 4)
Quarter: 2018Q3

REPORT INFORMATION
  Report Type: Report from Study
  Country: CA (occurrence: CA)
  Receive Date: 20180522
  Receipt Date: 20180817
  Transmission Date: 20181010
  Serious: Yes (Other)
  Sender: FDA-Public Use
  Company Number: CA-JNJFOC-20180118185

PATIENT
  Age: 51 Year
  Sex: Male

DRUGS (2)
  1. STELARA [Suspect]
     Active Substance: USTEKINUMAB
     Indication: CROHN^S DISEASE
     Route: 058
     Dates: start: 201704
  2. AMOXICILLIN. [Suspect]
     Active Substance: AMOXICILLIN
     Indication: SINUSITIS
     Route: 065

REACTIONS (11)
  - Influenza [Unknown]
  - General physical health deterioration [Recovering/Resolving]
  - Vein rupture [Unknown]
  - Nephrolithiasis [Unknown]
  - Varicose vein [Unknown]
  - Inappropriate schedule of drug administration [Unknown]
  - Crohn^s disease [Not Recovered/Not Resolved]
  - Goitre [Not Recovered/Not Resolved]
  - Arthralgia [Unknown]
  - Off label use [Unknown]
  - Product use issue [Unknown]

NARRATIVE: CASE EVENT DATE: 20180318
